FAERS Safety Report 8412039 (Version 3)
Quarter: 2013Q1

REPORT INFORMATION
  Report Type: Spontaneous
  Country: US (occurrence: US)
  Receive Date: 20120217
  Receipt Date: 20130108
  Transmission Date: 20140127
  Serious: Yes (Other)
  Sender: FDA-Public Use
  Company Number: US-PFIZER INC-2012041041

PATIENT
  Age: 31 Year
  Sex: Female

DRUGS (3)
  1. ZOLOFT [Suspect]
     Indication: DEPRESSION
     Dosage: UNK
  2. ZOLOFT [Suspect]
     Indication: ANXIETY
     Dosage: 12.5 MG, 1X/DAY
     Route: 048
     Dates: start: 201012, end: 201012
  3. XANAX [Suspect]
     Indication: ANXIETY
     Dosage: UNK

REACTIONS (12)
  - Loss of consciousness [Unknown]
  - Urinary retention [Recovered/Resolved]
  - Hypoaesthesia [Unknown]
  - Emotional poverty [Unknown]
  - Somnolence [Unknown]
  - Vomiting [Unknown]
  - Gastric pH decreased [Unknown]
  - Bladder disorder [Recovered/Resolved]
  - Drug ineffective [Unknown]
  - Irritable bowel syndrome [Unknown]
  - Renal disorder [Recovered/Resolved]
  - Tachycardia [Unknown]
